FAERS Safety Report 9613785 (Version 1)
Quarter: 2013Q4

REPORT INFORMATION
  Report Type: Spontaneous
  Country: JP (occurrence: JP)
  Receive Date: 20131010
  Receipt Date: 20131010
  Transmission Date: 20140711
  Serious: Yes (Other)
  Sender: FDA-Public Use
  Company Number: PHHY2013JP111798

PATIENT
  Age: 19 Year
  Sex: Female

DRUGS (3)
  1. PREDNISOLONE [Suspect]
     Indication: COLITIS ULCERATIVE
     Dosage: 3400 MG TOTAL DOSE
  2. PREDNISOLONE [Suspect]
     Dosage: 900 MG/MONTH BEFORE SURGERY
  3. CICLOSPORIN [Concomitant]
     Indication: IMMUNOMODULATORY THERAPY

REACTIONS (1)
  - Pouchitis [Unknown]
